FAERS Safety Report 9966746 (Version 1)
Quarter: 2014Q1

REPORT INFORMATION
  Report Type: Report from Study
  Country: US (occurrence: US)
  Receive Date: 20140305
  Receipt Date: 20140305
  Transmission Date: 20141002
  Serious: No
  Sender: FDA-Public Use
  Company Number: US-ABBVIE-13P-163-1122815-00

PATIENT
  Age: 41 Year
  Sex: Male

DRUGS (4)
  1. HUMIRA [Suspect]
     Indication: RHEUMATOID ARTHRITIS
     Dates: start: 20130715
  2. PREDNISONE [Concomitant]
     Indication: PRODUCT USED FOR UNKNOWN INDICATION
     Dosage: TAPERING
  3. TRAMADOL [Concomitant]
     Indication: PRODUCT USED FOR UNKNOWN INDICATION
  4. ASPIRIN [Concomitant]
     Indication: CARDIAC DISORDER
     Dosage: 325MG DAILY

REACTIONS (7)
  - Wrong technique in drug usage process [Unknown]
  - Injection site bruising [Recovering/Resolving]
  - Injection site induration [Recovering/Resolving]
  - Headache [Unknown]
  - Injection site pain [Recovered/Resolved]
  - Injection site discomfort [Recovered/Resolved]
  - Pharyngitis streptococcal [Unknown]
